FAERS Safety Report 4403616-1 (Version None)
Quarter: 2004Q3

REPORT INFORMATION
  Report Type: 
  Country: None (occurrence: None)
  Receive Date: 20040715
  Receipt Date: 20040629
  Transmission Date: 20050211
  Serious: Yes (Death)
  Sender: FDA-Public Use
  Company Number: US-JNJFOC-20040702498

PATIENT
  Age: 67 Year
  Sex: Male
  Weight: 96.5254 kg

DRUGS (18)
  1. LEVOFLOXACIN [Suspect]
     Indication: PNEUMONIA
     Dosage: 500 MG, 1 IN 1 DAY, ORAL
     Route: 048
     Dates: start: 20020316, end: 20020316
  2. ACCUPRIL [Concomitant]
  3. ALBUTEROL [Concomitant]
  4. AMBIEN [Concomitant]
  5. APAP (PARACETAMOL) [Concomitant]
  6. ATROVENT [Concomitant]
  7. CARDURA [Concomitant]
  8. COUMADIN [Concomitant]
  9. DIPENTUM (OLSALAZINE SODUIM) [Concomitant]
  10. GLYBURIDE [Concomitant]
  11. HUMULIN 70/30 (HUMAN MIXTARD) [Concomitant]
  12. HUMULIN R [Concomitant]
  13. KCL (POTASSIUM CHLORIDE) TABLETS [Concomitant]
  14. LIPITOR [Concomitant]
  15. NEURONTIN [Concomitant]
  16. OXYCONTIN [Concomitant]
  17. PAXIL [Concomitant]
  18. PREDNISONE [Concomitant]

REACTIONS (1)
  - DEATH [None]
